FAERS Safety Report 13060607 (Version 3)
Quarter: 2017Q2

REPORT INFORMATION
  Report Type: Report from Study
  Country: None (occurrence: US)
  Receive Date: 20161224
  Receipt Date: 20170406
  Transmission Date: 20170830
  Serious: Yes (Death, Congenital Anomaly, Other)
  Sender: FDA-Public Use
  Company Number: US-AMAG PHARMACEUTICALS, INC.-AMAG201603104

PATIENT

DRUGS (1)
  1. MAKENA [Suspect]
     Active Substance: HYDROXYPROGESTERONE CAPROATE
     Indication: EXPOSURE DURING PREGNANCY
     Dosage: 250 MG, WEEKLY
     Route: 065
     Dates: start: 20161121, end: 20161205

REACTIONS (2)
  - Foetal death [Fatal]
  - Trisomy 13 [Fatal]

NARRATIVE: CASE EVENT DATE: 20161207
